FAERS Safety Report 24564738 (Version 1)
Quarter: 2024Q4

REPORT INFORMATION
  Report Type: Spontaneous
  Country: ES (occurrence: ES)
  Receive Date: 20241030
  Receipt Date: 20241030
  Transmission Date: 20250115
  Serious: Yes (Death, Hospitalization, Other)
  Sender: AUROBINDO
  Company Number: ES-ROCHE-10000109364

PATIENT
  Age: 53 Year
  Sex: Female
  Weight: 92.2 kg

DRUGS (3)
  1. CARBOPLATIN [Suspect]
     Active Substance: CARBOPLATIN
     Indication: Neoplasm malignant
     Dosage: UNK [ON 07-DEC-2022 RECEIVED MOST RECENT DOSE (660 MG) PRIOR TO AE/SAE.]
     Route: 042
     Dates: start: 20221115, end: 20221207
  2. PEMETREXED [Suspect]
     Active Substance: PEMETREXED
     Indication: Neoplasm malignant
     Dosage: UNK [ON 07-DEC-2022 RECEIVED MOST RECENT DOSE (940 MG) PRIOR TO AE/SAE.]
     Route: 042
     Dates: start: 20221115, end: 20221207
  3. PEMBROLIZUMAB [Suspect]
     Active Substance: PEMBROLIZUMAB
     Indication: Neoplasm malignant
     Dosage: UNK [ON 07-DEC-2022, RECEIVED MOST RECENT DOSE (200 MG) PRIOR TO AE/SAE.]
     Route: 042
     Dates: start: 20221115, end: 20221207

REACTIONS (2)
  - Neoplasm malignant [Fatal]
  - Haematotoxicity [Recovered/Resolved]

NARRATIVE: CASE EVENT DATE: 20221215
